FAERS Safety Report 5166758-1 (Version None)
Quarter: 2006Q4

REPORT INFORMATION
  Report Type: 
  Country: None (occurrence: None)
  Receive Date: 20061129
  Receipt Date: 20061122
  Transmission Date: 20070319
  Serious: Yes (Disabling)
  Sender: FDA-Public Use
  Company Number: GXKR2006GB07551

PATIENT
  Age: 52 Year
  Sex: Male
  Weight: 77.5 kg

DRUGS (6)
  1. FLUOXETINE [Suspect]
     Indication: DEPRESSION
     Dosage: 20 MG, ORAL
     Route: 048
     Dates: start: 20060904, end: 20060919
  2. ATENOLOL [Concomitant]
  3. DIAZEPAM [Concomitant]
  4. LISINOPRIL [Concomitant]
  5. RANITIDINE [Concomitant]
  6. SIMVASTATIN [Concomitant]

REACTIONS (2)
  - HEPATITIS [None]
  - JAUNDICE [None]
